FAERS Safety Report 9799874 (Version 3)
Quarter: 2014Q1

REPORT INFORMATION
  Report Type: Spontaneous
  Country: IN (occurrence: IN)
  Receive Date: 20140106
  Receipt Date: 20140116
  Transmission Date: 20141002
  Serious: Yes (Death, Hospitalization)
  Sender: FDA-Public Use
  Company Number: IN-BAXTER-2013BAX052636

PATIENT
  Age: 56 Year
  Sex: Female

DRUGS (2)
  1. EXTRANEAL PERITONEAL DALYSIS SOLUTION WITH ICODEXTRIN 7.5% [Suspect]
     Indication: PERITONEAL DIALYSIS
     Route: 033
  2. EXTRANEAL PERITONEAL DALYSIS SOLUTION WITH ICODEXTRIN 7.5% [Suspect]
     Route: 033
     Dates: end: 20140105

REACTIONS (2)
  - Peritonitis [Fatal]
  - Kidney transplant rejection [Fatal]
